FAERS Safety Report 24113770 (Version 2)
Quarter: 2025Q3

REPORT INFORMATION
  Report Type: Spontaneous
  Country: US (occurrence: US)
  Receive Date: 20240720
  Receipt Date: 20250707
  Transmission Date: 20251021
  Serious: Yes (Other)
  Sender: GLENMARK
  Company Number: US-GLENMARK PHARMACEUTICALS-2024GMK091667

PATIENT

DRUGS (2)
  1. RYALTRIS [Suspect]
     Active Substance: MOMETASONE FUROATE MONOHYDRATE\OLOPATADINE HYDROCHLORIDE
     Indication: Asthma
     Dosage: BID (ADMINISTER 2 SPRAYS IN EACH NOSTRIL 2 TIMES DAILY)
     Route: 045
     Dates: start: 20240601, end: 20240610
  2. RYALTRIS [Suspect]
     Active Substance: MOMETASONE FUROATE MONOHYDRATE\OLOPATADINE HYDROCHLORIDE

REACTIONS (8)
  - Coronary artery occlusion [Unknown]
  - Joint swelling [Recovering/Resolving]
  - Peripheral swelling [Recovering/Resolving]
  - Chest discomfort [Unknown]
  - Abdominal distension [Unknown]
  - Swelling [Unknown]
  - Oropharyngeal pain [Unknown]
  - Product use in unapproved indication [Unknown]
